FAERS Safety Report 7751150-3 (Version None)
Quarter: 2011Q3

REPORT INFORMATION
  Report Type: 
  Country: None (occurrence: None)
  Receive Date: 20110912
  Receipt Date: 20110430
  Transmission Date: 20111222
  Serious: Yes (Death, Disabling, Other)
  Sender: FDA-Public Use
  Company Number: 2011MA013184

PATIENT
  Sex: Male

DRUGS (1)
  1. METOCLOPRAMIDE [Suspect]
     Indication: PRODUCT USED FOR UNKNOWN INDICATION

REACTIONS (5)
  - MOVEMENT DISORDER [None]
  - EXTRAPYRAMIDAL DISORDER [None]
  - TARDIVE DYSKINESIA [None]
  - NERVOUS SYSTEM DISORDER [None]
  - MULTIPLE INJURIES [None]
